FAERS Safety Report 20146360 (Version 1)
Quarter: 2021Q4

REPORT INFORMATION
  Report Type: Spontaneous
  Country: ES (occurrence: ES)
  Receive Date: 20211203
  Receipt Date: 20211203
  Transmission Date: 20220304
  Serious: Yes (Other)
  Sender: FDA-Public Use
  Company Number: ES-BAYER-2021A256594

PATIENT
  Age: 26 Year
  Sex: Male

DRUGS (3)
  1. REGORAFENIB [Suspect]
     Active Substance: REGORAFENIB
     Indication: Ewing^s sarcoma
     Dosage: 160 MG, UNK
     Dates: start: 20210817
  2. REGORAFENIB [Suspect]
     Active Substance: REGORAFENIB
     Indication: Ewing^s sarcoma
     Dosage: 120 MG, UNK
     Dates: start: 20210917
  3. REGORAFENIB [Suspect]
     Active Substance: REGORAFENIB
     Indication: Ewing^s sarcoma
     Dosage: 120 MG, UNK
     Dates: start: 20211015, end: 202111

REACTIONS (5)
  - Hepatic cancer [None]
  - Toxic skin eruption [None]
  - Asthenia [None]
  - Nausea [None]
  - Off label use [None]

NARRATIVE: CASE EVENT DATE: 20210101
